FAERS Safety Report 24918010 (Version 3)
Quarter: 2025Q1

REPORT INFORMATION
  Report Type: Spontaneous
  Country: US (occurrence: US)
  Receive Date: 20250203
  Receipt Date: 20250325
  Transmission Date: 20250409
  Serious: No
  Sender: JOHNSON AND JOHNSON
  Company Number: US-JNJFOC-20241226015

PATIENT
  Age: 83 Year
  Sex: Female

DRUGS (2)
  1. XARELTO [Suspect]
     Active Substance: RIVAROXABAN
     Indication: Product used for unknown indication
     Route: 048
  2. XARELTO [Suspect]
     Active Substance: RIVAROXABAN
     Route: 048

REACTIONS (8)
  - Respiratory tract infection [Unknown]
  - Dizziness [Unknown]
  - Anxiety [Unknown]
  - Product physical issue [Unknown]
  - Product packaging quantity issue [Unknown]
  - Product size issue [Unknown]
  - Product physical issue [Unknown]
  - Malaise [Unknown]
